FAERS Safety Report 8232759-X (Version None)
Quarter: 2012Q1

REPORT INFORMATION
  Report Type: 
  Country: None (occurrence: None)
  Receive Date: 20120323
  Receipt Date: 20120320
  Transmission Date: 20120608
  Serious: Yes (Other)
  Sender: FDA-Public Use
  Company Number: FR-MERCK-1105FRA00080

PATIENT
  Age: 24 Year
  Sex: Male

DRUGS (2)
  1. PROPECIA [Suspect]
     Indication: ALOPECIA
     Route: 048
     Dates: start: 20101201, end: 20110315
  2. FINASTERIDE [Suspect]
     Indication: ALOPECIA
     Route: 048
     Dates: start: 20101201, end: 20101201

REACTIONS (3)
  - LOSS OF LIBIDO [None]
  - POLLAKIURIA [None]
  - ERECTILE DYSFUNCTION [None]
